FAERS Safety Report 5920048-5 (Version None)
Quarter: 2008Q4

REPORT INFORMATION
  Report Type: 
  Country: None (occurrence: None)
  Receive Date: 20081014
  Receipt Date: 20081002
  Transmission Date: 20090506
  Serious: Yes (Other)
  Sender: FDA-Public Use
  Company Number: CHPA2008US16792

PATIENT
  Age: 1 Year

DRUGS (1)
  1. EX-LAX UNKNOWN (NCH) (UNKNOWN) UNKNOWN [Suspect]

REACTIONS (2)
  - DERMATITIS CONTACT [None]
  - OVERDOSE [None]
